FAERS Safety Report 7955353-4 (Version None)
Quarter: 2011Q4

REPORT INFORMATION
  Report Type: 
  Country: None (occurrence: None)
  Receive Date: 20111202
  Receipt Date: 20111126
  Transmission Date: 20120403
  Serious: Yes (Other)
  Sender: FDA-Public Use
  Company Number: US-CEPHALON-US013329

PATIENT
  Sex: Female

DRUGS (4)
  1. EFFEXOR [Concomitant]
     Route: 065
  2. NEURONTIN [Concomitant]
     Route: 065
  3. ACTIQ [Suspect]
     Indication: BACK PAIN
     Route: 002
  4. MORPHINE SULFATE [Concomitant]
     Indication: BACK PAIN
     Route: 065

REACTIONS (4)
  - LETHARGY [None]
  - SOMNOLENCE [None]
  - DEPRESSED LEVEL OF CONSCIOUSNESS [None]
  - DYSARTHRIA [None]
